FAERS Safety Report 10329040 (Version 2)
Quarter: 2014Q3

REPORT INFORMATION
  Report Type: Report from Study
  Country: MX (occurrence: MX)
  Receive Date: 20140721
  Receipt Date: 20140721
  Transmission Date: 20150326
  Serious: Yes (Other)
  Sender: FDA-Public Use
  Company Number: PHHY2014MX076691

PATIENT
  Age: 68 Year
  Sex: Female

DRUGS (2)
  1. ACLASTA [Suspect]
     Active Substance: ZOLEDRONIC ACID
     Indication: OSTEOPOROSIS
     Dosage: 1 DF, YEARLY
     Route: 042
     Dates: start: 200805
  2. OS-CAL [Concomitant]
     Indication: BLOOD CALCIUM
     Dosage: 1 DF, DAILY

REACTIONS (6)
  - Cataract [Unknown]
  - Skin disorder [Not Recovered/Not Resolved]
  - Visual impairment [Unknown]
  - Vein disorder [Unknown]
  - Cataract operation complication [Not Recovered/Not Resolved]
  - Drug ineffective [Not Recovered/Not Resolved]

NARRATIVE: CASE EVENT DATE: 201109
